FAERS Safety Report 21675344 (Version 1)
Quarter: 2022Q4

REPORT INFORMATION
  Report Type: Spontaneous
  Country: JP (occurrence: JP)
  Receive Date: 20221202
  Receipt Date: 20221202
  Transmission Date: 20230113
  Serious: Yes (Hospitalization, Other)
  Sender: FDA-Public Use
  Company Number: JP-VIIV HEALTHCARE ULC-JP2022JPN178225

PATIENT

DRUGS (2)
  1. EPZICOM [Suspect]
     Active Substance: ABACAVIR SULFATE\LAMIVUDINE
     Indication: HIV infection
     Dosage: UNK
  2. EFAVIRENZ [Concomitant]
     Active Substance: EFAVIRENZ
     Indication: HIV infection
     Dosage: UNK

REACTIONS (6)
  - Thrombotic cerebral infarction [Recovered/Resolved]
  - Sensory disturbance [Unknown]
  - Diplopia [Unknown]
  - Hemiparesis [Unknown]
  - Dysarthria [Unknown]
  - Altered state of consciousness [Unknown]
